FAERS Safety Report 4296174-6 (Version None)
Quarter: 2004Q1

REPORT INFORMATION
  Report Type: 
  Country: None (occurrence: None)
  Receive Date: 20040217
  Receipt Date: 20030909
  Transmission Date: 20041129
  Serious: No
  Sender: FDA-Public Use
  Company Number: US-GLAXOSMITHKLINE-A0425140A

PATIENT
  Age: 46 Year
  Sex: Female
  Weight: 90.9 kg

DRUGS (1)
  1. LAMICTAL [Suspect]
     Indication: BIPOLAR DISORDER
     Dosage: 25MG PER DAY
     Route: 048
     Dates: start: 20030822, end: 20030906

REACTIONS (4)
  - APATHY [None]
  - DEPRESSION [None]
  - LETHARGY [None]
  - SUICIDAL IDEATION [None]
